FAERS Safety Report 24346336 (Version 1)
Quarter: 2024Q3

REPORT INFORMATION
  Report Type: Spontaneous
  Country: US (occurrence: US)
  Receive Date: 20240921
  Receipt Date: 20240921
  Transmission Date: 20241017
  Serious: Yes (Death, Hospitalization, Other)
  Sender: AMGEN
  Company Number: US-AMGEN-USASP2024182868

PATIENT

DRUGS (3)
  1. PEGFILGRASTIM [Suspect]
     Active Substance: PEGFILGRASTIM
     Indication: Hairy cell leukaemia
     Dosage: 3-6 MG ON DAY 6
     Route: 058
  2. CLADRIBINE [Concomitant]
     Active Substance: CLADRIBINE
     Dosage: 5.6 MILLIGRAM/SQ. METER, OVER 2H DAILY FOR 5 DAYS
     Route: 042
  3. RITUXIMAB [Concomitant]
     Active Substance: RITUXIMAB
     Dosage: 375 MILLIGRAM/SQ. METER, STARTING 28DAYS (PLUS OR MINUS 4DAYS) AFTER THE INITIATION OF CLADRIBINE AN
     Route: 065

REACTIONS (27)
  - Hairy cell leukaemia recurrent [Fatal]
  - Death [Fatal]
  - Fatigue [Unknown]
  - Stress cardiomyopathy [Unknown]
  - B-cell lymphoma [Unknown]
  - Dementia [Unknown]
  - Pneumonia [Unknown]
  - Neoplasm malignant [Unknown]
  - Chronic lymphocytic leukaemia [Unknown]
  - Febrile neutropenia [Unknown]
  - Prostate cancer [Unknown]
  - Herpes zoster [Unknown]
  - Abdominal abscess [Unknown]
  - Urinary tract infection [Unknown]
  - Infection [Unknown]
  - Haematological malignancy [Unknown]
  - Infusion related reaction [Recovered/Resolved]
  - Headache [Unknown]
  - Nausea [Unknown]
  - Upper respiratory tract infection [Unknown]
  - Rash [Unknown]
  - Bronchitis [Unknown]
  - Cellulitis [Unknown]
  - COVID-19 [Unknown]
  - Pyrexia [Unknown]
  - Sinusitis [Unknown]
  - Viral infection [Unknown]
